FAERS Safety Report 25095643 (Version 1)
Quarter: 2025Q1

REPORT INFORMATION
  Report Type: Spontaneous
  Country: US (occurrence: US)
  Receive Date: 20250319
  Receipt Date: 20250319
  Transmission Date: 20250409
  Serious: No
  Sender: MERZ
  Company Number: US-BIOGEN-2023BI01234931

PATIENT
  Age: 42 Year
  Sex: Male

DRUGS (11)
  1. DALFAMPRIDINE [Suspect]
     Active Substance: DALFAMPRIDINE
     Indication: Multiple sclerosis
     Dosage: 10 MILLIGRAM, BID
     Route: 048
     Dates: start: 20231015
  2. AVONEX [Suspect]
     Active Substance: INTERFERON BETA-1A
     Indication: Multiple sclerosis
     Dosage: 30 MICROGRAM, WEEKLY
     Route: 030
  3. DEVICE [Suspect]
     Active Substance: DEVICE
     Indication: Multiple sclerosis
     Route: 030
  4. DEVICE [Suspect]
     Active Substance: DEVICE
     Indication: Multiple sclerosis
     Route: 030
  5. DEVICE [Suspect]
     Active Substance: DEVICE
     Indication: Multiple sclerosis
     Route: 030
  6. AVONEX [Suspect]
     Active Substance: INTERFERON BETA-1A
     Indication: Multiple sclerosis
     Route: 030
  7. AVONEX [Suspect]
     Active Substance: INTERFERON BETA-1A
     Indication: Multiple sclerosis
     Dosage: 30 MICROGRAM, WEEKLY
     Route: 030
  8. DEVICE [Suspect]
     Active Substance: DEVICE
     Indication: Multiple sclerosis
     Route: 030
  9. DEVICE [Suspect]
     Active Substance: DEVICE
     Indication: Multiple sclerosis
     Route: 030
  10. DEVICE [Suspect]
     Active Substance: DEVICE
     Indication: Multiple sclerosis
     Route: 030
  11. AVONEX [Suspect]
     Active Substance: INTERFERON BETA-1A
     Indication: Multiple sclerosis
     Route: 030

REACTIONS (1)
  - Feeling abnormal [Unknown]

NARRATIVE: CASE EVENT DATE: 20231015
